FAERS Safety Report 20150844 (Version 4)
Quarter: 2022Q1

REPORT INFORMATION
  Report Type: Other
  Country: IT (occurrence: None)
  Receive Date: 20211206
  Receipt Date: 20220214
  Transmission Date: 20220423
  Serious: Yes (Life-Threatening, Hospitalization)
  Sender: FDA-Public Use
  Company Number: IT-ROCHE-2727338

PATIENT
  Age: 60 Year
  Sex: Male

DRUGS (3)
  1. OBINUTUZUMAB [Suspect]
     Active Substance: OBINUTUZUMAB
     Indication: Follicular lymphoma
     Dosage: INDUCTION PHASE: 1000 MILLIGRAM (MG) INTRAVENOUSLY (IV) ON DAY 1, 8, 15 OF CYCLE 1 AN DAY 1 OF CYCLE
     Route: 042
     Dates: start: 20190603
  2. TOCILIZUMAB [Suspect]
     Active Substance: TOCILIZUMAB
     Indication: COVID-19
     Route: 065
     Dates: start: 20210117
  3. TOCILIZUMAB [Suspect]
     Active Substance: TOCILIZUMAB
     Indication: Respiratory failure

REACTIONS (3)
  - Respiratory failure [Recovered/Resolved]
  - COVID-19 [Recovered/Resolved]
  - Off label use [Unknown]

NARRATIVE: CASE EVENT DATE: 20201123
